FAERS Safety Report 6650044-4 (Version None)
Quarter: 2010Q1

REPORT INFORMATION
  Report Type: 
  Country: None (occurrence: None)
  Receive Date: 20100322
  Receipt Date: 20100308
  Transmission Date: 20100710
  Serious: No
  Sender: FDA-Public Use
  Company Number: DE-001579

PATIENT
  Sex: Male

DRUGS (2)
  1. FIRMAGON [Suspect]
     Indication: PROSTATE CANCER
     Dosage: 240 MG 1X SUBCUTANEOUS, 80 MG 1XMONTH SUBCUTANEOUS
     Route: 058
     Dates: start: 20090921, end: 20090921
  2. FIRMAGON [Suspect]
     Indication: PROSTATE CANCER
     Dosage: 240 MG 1X SUBCUTANEOUS, 80 MG 1XMONTH SUBCUTANEOUS
     Route: 058
     Dates: start: 20091020, end: 20091207

REACTIONS (1)
  - RASH PRURITIC [None]
